FAERS Safety Report 9292174 (Version 1)
Quarter: 2013Q2

REPORT INFORMATION
  Report Type: Report from Study
  Country: US (occurrence: US)
  Receive Date: 20130516
  Receipt Date: 20130516
  Transmission Date: 20140414
  Serious: Yes (Other)
  Sender: FDA-Public Use
  Company Number: US-JNJFOC-20130501127

PATIENT
  Sex: Female

DRUGS (4)
  1. DOXORUBICIN HYDROCHLORIDE [Suspect]
     Indication: MALIGNANT PERITONEAL NEOPLASM
     Route: 042
  2. DOXORUBICIN HYDROCHLORIDE [Suspect]
     Indication: OVARIAN EPITHELIAL CANCER RECURRENT
     Route: 042
  3. CARBOPLATIN [Suspect]
     Indication: MALIGNANT PERITONEAL NEOPLASM
     Route: 065
  4. CARBOPLATIN [Suspect]
     Indication: OVARIAN EPITHELIAL CANCER RECURRENT
     Route: 065

REACTIONS (1)
  - Hypomagnesaemia [Unknown]
